FAERS Safety Report 14530747 (Version 1)
Quarter: 2018Q1

REPORT INFORMATION
  Report Type: Spontaneous
  Country: US (occurrence: US)
  Receive Date: 20180214
  Receipt Date: 20180214
  Transmission Date: 20180509
  Serious: Yes (Other)
  Sender: FDA-Public Use
  Company Number: US-ABBVIE-18P-163-2252854-00

PATIENT
  Age: 57 Year
  Sex: Female

DRUGS (1)
  1. LUPRON DEPOT [Suspect]
     Active Substance: LEUPROLIDE ACETATE
     Indication: ENDOMETRIOSIS
     Route: 030

REACTIONS (4)
  - Exposure during pregnancy [Unknown]
  - Laparoscopy [Recovered/Resolved]
  - Bronchitis [Recovered/Resolved]
  - Live birth [Unknown]
